FAERS Safety Report 7910744-2 (Version None)
Quarter: 2011Q4

REPORT INFORMATION
  Report Type: 
  Country: None (occurrence: None)
  Receive Date: 20111112
  Receipt Date: 20111102
  Transmission Date: 20120403
  Serious: Yes (Other)
  Sender: FDA-Public Use
  Company Number: US-ASTRAZENECA-2011SE17427

PATIENT
  Age: 61 Year
  Sex: Female
  Weight: 50.8 kg

DRUGS (3)
  1. CRESTOR [Suspect]
     Route: 048
  2. ARIMIDEX [Suspect]
     Indication: BREAST CANCER
     Route: 048
     Dates: start: 20080101
  3. QUESTRAN [Suspect]
     Indication: DIARRHOEA
     Route: 065

REACTIONS (13)
  - ABDOMINAL DISCOMFORT [None]
  - TUMOUR MARKER INCREASED [None]
  - DRY THROAT [None]
  - BREAST CANCER [None]
  - DRY MOUTH [None]
  - FATIGUE [None]
  - BLOOD CHOLESTEROL INCREASED [None]
  - HYPERHIDROSIS [None]
  - ARTHRALGIA [None]
  - BREAST MASS [None]
  - DIARRHOEA [None]
  - COUGH [None]
  - CONSTIPATION [None]
